FAERS Safety Report 7560975-9 (Version None)
Quarter: 2011Q2

REPORT INFORMATION
  Report Type: 
  Country: None (occurrence: None)
  Receive Date: 20110620
  Receipt Date: 20110620
  Transmission Date: 20111010
  Serious: Yes (Other)
  Sender: FDA-Public Use
  Company Number: None

PATIENT
  Age: 29 Year
  Sex: Male
  Weight: 74.8435 kg

DRUGS (2)
  1. SOTRET [Suspect]
     Indication: ACNE
     Dosage: 2 CAPSULE A  DAY PO
     Route: 048
     Dates: start: 20050920, end: 20060919
  2. ACCUTANE [Suspect]
     Indication: ACNE
     Dosage: 2 CAPSULE A DAY PO
     Route: 048
     Dates: start: 20030414, end: 20050919

REACTIONS (13)
  - IRRITABLE BOWEL SYNDROME [None]
  - BONE PAIN [None]
  - ARTHRALGIA [None]
  - IRRITABILITY [None]
  - ANGER [None]
  - DEPRESSED MOOD [None]
  - LIP DRY [None]
  - NERVOUS SYSTEM DISORDER [None]
  - GASTROOESOPHAGEAL REFLUX DISEASE [None]
  - PRURITUS [None]
  - EPISTAXIS [None]
  - RHINORRHOEA [None]
  - MOOD ALTERED [None]
